FAERS Safety Report 16992529 (Version 1)
Quarter: 2019Q4

REPORT INFORMATION
  Report Type: Report from Study
  Country: US (occurrence: US)
  Receive Date: 20191105
  Receipt Date: 20191105
  Transmission Date: 20200122
  Serious: Yes (Life-Threatening)
  Sender: FDA-Public Use
  Company Number: US-TEVA-2019-US-1132096

PATIENT
  Age: 77 Year

DRUGS (2)
  1. WARFARIN [Suspect]
     Active Substance: WARFARIN
     Indication: ANTICOAGULANT THERAPY
     Route: 048
  2. AACETYLSALICYLIC ACID [Concomitant]
     Indication: ANTIPLATELET THERAPY
     Route: 065

REACTIONS (1)
  - Haematuria [Unknown]
